FAERS Safety Report 8477372-4 (Version None)
Quarter: 2012Q2

REPORT INFORMATION
  Report Type: 
  Country: None (occurrence: None)
  Receive Date: 20120618
  Receipt Date: 20120607
  Transmission Date: 20120825
  Serious: Yes (Other)
  Sender: FDA-Public Use
  Company Number: 2012SP031321

PATIENT
  Sex: Female

DRUGS (4)
  1. PEG-INTRON [Suspect]
     Indication: HEPATITIS C
     Dates: start: 20120504
  2. VALTREX [Suspect]
     Indication: HERPES ZOSTER
  3. VICTRELIS [Suspect]
     Indication: HEPATITIS C
     Dates: start: 20120101
  4. RIBAVIRIN [Suspect]
     Indication: HEPATITIS C
     Dates: start: 20120504

REACTIONS (15)
  - SWOLLEN TONGUE [None]
  - FEELING ABNORMAL [None]
  - CONTUSION [None]
  - VASCULAR INJURY [None]
  - DRUG HYPERSENSITIVITY [None]
  - DYSGEUSIA [None]
  - VOMITING [None]
  - HYPOAESTHESIA [None]
  - SCRATCH [None]
  - ORAL CANDIDIASIS [None]
  - DIARRHOEA [None]
  - SWELLING FACE [None]
  - INFLUENZA LIKE ILLNESS [None]
  - RASH [None]
  - HERPES ZOSTER [None]
